FAERS Safety Report 7739470-X (Version None)
Quarter: 2011Q3

REPORT INFORMATION
  Report Type: 
  Country: None (occurrence: None)
  Receive Date: 20110909
  Receipt Date: 20110831
  Transmission Date: 20111222
  Serious: Yes (Death)
  Sender: FDA-Public Use
  Company Number: JP-JNJFOC-20110105492

PATIENT
  Age: 86 Year
  Sex: Male
  Weight: 54 kg

DRUGS (6)
  1. ISONIAZID [Concomitant]
     Indication: ANTIBIOTIC PROPHYLAXIS
     Dates: start: 20100606, end: 20100916
  2. DOVONEX [Concomitant]
     Indication: PUSTULAR PSORIASIS
     Dates: end: 20100916
  3. REMICADE [Suspect]
     Indication: PUSTULAR PSORIASIS
     Dosage: 3RD INFUSION
     Route: 042
     Dates: start: 20100812
  4. REMICADE [Suspect]
     Dosage: 1ST INFUSION
     Route: 042
     Dates: start: 20100701
  5. REMICADE [Suspect]
     Dosage: 2ND INFUSION
     Route: 042
     Dates: start: 20100715
  6. ANTEBATE [Concomitant]
     Indication: PUSTULAR PSORIASIS
     Dates: end: 20100916

REACTIONS (1)
  - PNEUMONIA ASPIRATION [None]
